FAERS Safety Report 7888356-9 (Version None)
Quarter: 2011Q4

REPORT INFORMATION
  Report Type: 
  Country: None (occurrence: None)
  Receive Date: 20111103
  Receipt Date: 20111031
  Transmission Date: 20120403
  Serious: Yes (Other)
  Sender: FDA-Public Use
  Company Number: US-PFIZER INC-2011266517

PATIENT
  Sex: Male
  Weight: 77.098 kg

DRUGS (3)
  1. PRISTIQ [Suspect]
     Indication: DEPRESSION
     Dosage: 50 MG, 1X/DAY
     Route: 048
     Dates: start: 20111022
  2. CYMBALTA [Concomitant]
     Indication: DEPRESSION
     Dosage: UNK
  3. LITHIUM [Concomitant]
     Indication: DEPRESSION
     Dosage: UNK

REACTIONS (4)
  - CHOKING [None]
  - DYSPHAGIA [None]
  - FOREIGN BODY [None]
  - OROPHARYNGEAL DISCOMFORT [None]
